FAERS Safety Report 25849440 (Version 2)
Quarter: 2025Q4

REPORT INFORMATION
  Report Type: Spontaneous
  Country: JP (occurrence: JP)
  Receive Date: 20250925
  Receipt Date: 20251004
  Transmission Date: 20260117
  Serious: Yes (Hospitalization, Other)
  Sender: AMGEN
  Company Number: JP-AMGEN-JPNSP2025188081

PATIENT

DRUGS (5)
  1. IMDELLTRA [Suspect]
     Active Substance: TARLATAMAB-DLLE
     Indication: Small cell lung cancer
     Dosage: 1 MILLIGRAM (DAY 1)
     Route: 040
     Dates: start: 20250617
  2. IMDELLTRA [Suspect]
     Active Substance: TARLATAMAB-DLLE
     Dosage: UNK, (DAY 8)
     Route: 040
     Dates: start: 20250624, end: 20250624
  3. IMDELLTRA [Suspect]
     Active Substance: TARLATAMAB-DLLE
     Dosage: 10 MILLIGRAM RESUMED (DAY 1)
     Route: 040
     Dates: start: 20250806
  4. IMDELLTRA [Suspect]
     Active Substance: TARLATAMAB-DLLE
     Dosage: UNK, (DAY 8)
     Route: 040
     Dates: start: 20250813
  5. IMDELLTRA [Suspect]
     Active Substance: TARLATAMAB-DLLE
     Dosage: UNK, DAY 15
     Route: 040
     Dates: start: 20250820, end: 20250820

REACTIONS (5)
  - Tumour pseudoprogression [Unknown]
  - Brain oedema [Unknown]
  - Altered state of consciousness [Unknown]
  - Neurological examination abnormal [Recovered/Resolved]
  - Off label use [Unknown]

NARRATIVE: CASE EVENT DATE: 20250617
